FAERS Safety Report 6904610-9 (Version None)
Quarter: 2010Q3

REPORT INFORMATION
  Report Type: 
  Country: None (occurrence: None)
  Receive Date: 20100804
  Receipt Date: 20090616
  Transmission Date: 20110219
  Serious: No
  Sender: FDA-Public Use
  Company Number: US-PFIZER INC-2009199241

PATIENT
  Sex: Female
  Weight: 81.633 kg

DRUGS (9)
  1. LYRICA [Suspect]
     Indication: COLLAGEN DISORDER
     Dosage: UNK
     Dates: start: 20080101
  2. LYRICA [Suspect]
     Indication: PAIN
  3. IMITREX [Concomitant]
     Dosage: UNK
  4. CYMBALTA [Concomitant]
     Dosage: UNK
  5. DESVENLAFAXINE [Concomitant]
  6. DIAZEPAM [Concomitant]
     Dosage: UNK
  7. VICODIN [Concomitant]
     Dosage: UNK
  8. MEPERIDINE HCL [Concomitant]
     Dosage: UNK
  9. PROMETHAZINE [Concomitant]
     Dosage: UNK

REACTIONS (3)
  - FOOD CRAVING [None]
  - INCREASED APPETITE [None]
  - WEIGHT INCREASED [None]
